FAERS Safety Report 7793272-7 (Version None)
Quarter: 2011Q4

REPORT INFORMATION
  Report Type: 
  Country: None (occurrence: None)
  Receive Date: 20111003
  Receipt Date: 20110922
  Transmission Date: 20120403
  Serious: Yes (Other)
  Sender: FDA-Public Use
  Company Number: IT-ASTRAZENECA-2011SE57097

PATIENT
  Age: 58 Year
  Sex: Female
  Weight: 98 kg

DRUGS (2)
  1. LAPATINIB [Suspect]
     Indication: BREAST CANCER METASTATIC
     Dosage: DAILY
     Route: 048
     Dates: start: 20101222, end: 20110915
  2. FULVESTRANT [Suspect]
     Indication: BREAST CANCER METASTATIC
     Route: 030
     Dates: start: 20101222, end: 20110915

REACTIONS (1)
  - EJECTION FRACTION DECREASED [None]
